FAERS Safety Report 4742960-5 (Version None)
Quarter: 2005Q3

REPORT INFORMATION
  Report Type: 
  Country: None (occurrence: None)
  Receive Date: 20050810
  Receipt Date: 20050810
  Transmission Date: 20060218
  Serious: Yes (Death, Hospitalization)
  Sender: FDA-Public Use
  Company Number: None

PATIENT
  Sex: Female
  Weight: 115 kg

DRUGS (10)
  1. DOXORUBICIN HCL [Suspect]
     Indication: RENAL CELL CARCINOMA STAGE UNSPECIFIED
     Dosage: SEE IMAGE
     Route: 042
     Dates: start: 20050804, end: 20050804
  2. GEMCITABINE [Suspect]
     Dosage: SEE IMAGE
     Route: 042
     Dates: start: 20050804, end: 20050804
  3. NEULASTA [Suspect]
     Dosage: SEE IMAGE
     Route: 058
     Dates: start: 20050805, end: 20050805
  4. NEULASTA [Suspect]
     Dosage: SEE IMAGE
     Route: 058
     Dates: start: 20020804
  5. ACTOS [Concomitant]
  6. COSOPT [Concomitant]
  7. GLYBURIDE [Concomitant]
  8. LOVASTATIN [Concomitant]
  9. PRECOSE [Concomitant]
  10. VASOTEC RPD [Concomitant]

REACTIONS (6)
  - BLOOD PRESSURE DECREASED [None]
  - CARDIO-RESPIRATORY ARREST [None]
  - CIRCULATORY COLLAPSE [None]
  - LOSS OF CONSCIOUSNESS [None]
  - SYNCOPE [None]
  - VOMITING [None]
